FAERS Safety Report 6156448-0 (Version None)
Quarter: 2009Q2

REPORT INFORMATION
  Report Type: 
  Country: None (occurrence: None)
  Receive Date: 20090413
  Receipt Date: 20090401
  Transmission Date: 20091009
  Serious: Yes (Hospitalization, Other)
  Sender: FDA-Public Use
  Company Number: 231275K08USA

PATIENT
  Age: 49 Year
  Sex: Male

DRUGS (5)
  1. REBIF [Suspect]
     Indication: MULTIPLE SCLEROSIS
     Dosage: 8.8 MCG, 3 IN 1 WEEKS, SUBCUTANEOUS
     Route: 058
     Dates: start: 20081028, end: 20090301
  2. UNSPECIFIED DIABETES MEDICATTON(ANTI-DIABETICS) [Concomitant]
  3. NORVASC (AMLODTPINE) [Concomitant]
  4. ADVAIR HFA [Concomitant]
  5. ALBUTEROL TREATMENTS(SALBUTAMOL /00139501/) [Concomitant]

REACTIONS (8)
  - BLOOD GLUCOSE FLUCTUATION [None]
  - GAIT DISTURBANCE [None]
  - HYPERHIDROSIS [None]
  - MALAISE [None]
  - MENTAL DISORDER [None]
  - MULTIPLE SCLEROSIS RELAPSE [None]
  - SOCIAL PROBLEM [None]
  - SUICIDE ATTEMPT [None]
